FAERS Safety Report 14305384 (Version 1)
Quarter: 2017Q4

REPORT INFORMATION
  Report Type: Spontaneous
  Country: US (occurrence: US)
  Receive Date: 20171219
  Receipt Date: 20171219
  Transmission Date: 20180321
  Serious: Yes (Hospitalization, Other)
  Sender: FDA-Public Use
  Company Number: US-OTSUKA-DJ20115325

PATIENT
  Sex: Female
  Weight: 50 kg

DRUGS (1)
  1. ABILIFY [Suspect]
     Active Substance: ARIPIPRAZOLE
     Indication: DEPRESSION
     Dosage: UNK
     Route: 065

REACTIONS (8)
  - Peripheral swelling [Unknown]
  - Fall [Unknown]
  - Weight decreased [Unknown]
  - Eating disorder [Unknown]
  - Abnormal behaviour [Unknown]
  - Vomiting [Unknown]
  - Gait disturbance [Unknown]
  - Oedema peripheral [Unknown]
